FAERS Safety Report 15742847 (Version 1)
Quarter: 2018Q4

REPORT INFORMATION
  Report Type: Spontaneous
  Country: CZ (occurrence: CZ)
  Receive Date: 20181219
  Receipt Date: 20181219
  Transmission Date: 20190205
  Serious: Yes (Life-Threatening, Hospitalization, Other)
  Sender: FDA-Public Use
  Company Number: CZ-BAXTER-2018BAX030138

PATIENT
  Age: 39 Year
  Sex: Female

DRUGS (6)
  1. NOVALGIN (METAMIZOLE SODIUM) [Suspect]
     Active Substance: METAMIZOLE SODIUM
     Route: 042
     Dates: start: 20181128, end: 20181128
  2. FYZIOLOGICK? ROZTOK VIAFLO [Suspect]
     Active Substance: SODIUM CHLORIDE
     Indication: LAPAROSCOPY
     Dosage: 250ML
     Route: 042
     Dates: start: 20181128, end: 20181128
  3. SEVORANE [Suspect]
     Active Substance: SEVOFLURANE
     Indication: LAPAROSCOPY
     Route: 055
     Dates: start: 20181128, end: 20181128
  4. SUFENTA [Suspect]
     Active Substance: SUFENTANIL CITRATE
     Indication: LAPAROSCOPY
     Route: 042
     Dates: start: 20181128, end: 20181128
  5. PROPOFOL. [Suspect]
     Active Substance: PROPOFOL
     Indication: LAPAROSCOPY
     Route: 042
     Dates: start: 20181128, end: 20181128
  6. NOVALGIN (METAMIZOLE SODIUM) [Suspect]
     Active Substance: METAMIZOLE SODIUM
     Indication: LAPAROSCOPY
     Route: 042
     Dates: start: 20181128, end: 20181128

REACTIONS (7)
  - Hypotension [Recovering/Resolving]
  - Hepatorenal failure [Recovering/Resolving]
  - Device issue [Unknown]
  - Septic shock [Recovering/Resolving]
  - Asthenia [Recovering/Resolving]
  - Suspected product quality issue [Unknown]
  - Somnolence [Recovering/Resolving]

NARRATIVE: CASE EVENT DATE: 20181128
